FAERS Safety Report 14401982 (Version 6)
Quarter: 2021Q1

REPORT INFORMATION
  Report Type: Spontaneous
  Country: US (occurrence: US)
  Receive Date: 20180117
  Receipt Date: 20210223
  Transmission Date: 20210419
  Serious: Yes (Hospitalization, Other)
  Sender: FDA-Public Use
  Company Number: US-ELI_LILLY_AND_COMPANY-US201801002883

PATIENT
  Age: 70 Year
  Sex: Female

DRUGS (7)
  1. HUMALOG [Suspect]
     Active Substance: INSULIN LISPRO
     Dosage: UP TO 84 U, PRN PER SLIDING SCALE
     Route: 065
  2. GLIMEPIRIDE. [Concomitant]
     Active Substance: GLIMEPIRIDE
     Indication: PRODUCT USED FOR UNKNOWN INDICATION
  3. HUMALOG [Suspect]
     Active Substance: INSULIN LISPRO
     Indication: TYPE 2 DIABETES MELLITUS
     Dosage: UP TO 10 U, PRN PER SLIDING SCALE
     Route: 065
     Dates: start: 201706
  4. HUMULIN N [Suspect]
     Active Substance: INSULIN HUMAN
     Indication: TYPE 2 DIABETES MELLITUS
     Dosage: UNK, UNKNOWN
     Route: 065
  5. HUMALOG [Suspect]
     Active Substance: INSULIN LISPRO
     Indication: TYPE 2 DIABETES MELLITUS
     Dosage: UP TO 10 U, PRN PER SLIDING SCALE
     Route: 065
     Dates: start: 201706
  6. HUMALOG [Suspect]
     Active Substance: INSULIN LISPRO
     Dosage: UP TO 84 U, PRN PER SLIDING SCALE
     Route: 065
  7. GLIPIZIDE. [Concomitant]
     Active Substance: GLIPIZIDE
     Indication: PRODUCT USED FOR UNKNOWN INDICATION
     Dosage: 5 MG, DAILY

REACTIONS (12)
  - Cardiac disorder [Unknown]
  - Pain in extremity [Unknown]
  - Fall [Unknown]
  - Blood glucose decreased [Recovered/Resolved]
  - Hyperkeratosis [Not Recovered/Not Resolved]
  - Anxiety [Unknown]
  - Fatigue [Unknown]
  - Illness [Unknown]
  - Myocardial infarction [Unknown]
  - Skin ulcer [Not Recovered/Not Resolved]
  - Incorrect product administration duration [Recovering/Resolving]
  - Drug ineffective [Recovered/Resolved]

NARRATIVE: CASE EVENT DATE: 202012
